FAERS Safety Report 23751184 (Version 4)
Quarter: 2024Q4

REPORT INFORMATION
  Report Type: Report from Study
  Country: US (occurrence: US)
  Receive Date: 20240417
  Receipt Date: 20241113
  Transmission Date: 20250114
  Serious: Yes (Hospitalization)
  Sender: ROCHE
  Company Number: US-ROCHE-3544685

PATIENT
  Age: 51 Year
  Sex: Male

DRUGS (2)
  1. RITUXAN [Suspect]
     Active Substance: RITUXIMAB
     Indication: Demyelination
     Dosage: 1000MG ON DAY 1 AND DAY 15 THEN 1000MG EVERY 6 MONTH THEREAFTER.
     Route: 065
     Dates: start: 20240424
  2. RITUXAN [Suspect]
     Active Substance: RITUXIMAB
     Indication: Myelitis transverse

REACTIONS (2)
  - Off label use [Unknown]
  - Speech disorder [Unknown]
